FAERS Safety Report 13048036 (Version 1)
Quarter: 2016Q4

REPORT INFORMATION
  Report Type: Spontaneous
  Country: US (occurrence: US)
  Receive Date: 20161220
  Receipt Date: 20161220
  Transmission Date: 20170207
  Serious: Yes (Hospitalization, Disabling)
  Sender: FDA-Public Use
  Company Number: None

PATIENT
  Age: 69 Year
  Sex: Male
  Weight: 81.7 kg

DRUGS (1)
  1. APIXABAN [Suspect]
     Active Substance: APIXABAN
     Indication: CEREBROVASCULAR ACCIDENT PROPHYLAXIS
     Route: 048
     Dates: start: 20161209, end: 20161211

REACTIONS (9)
  - Activities of daily living impaired [None]
  - Neuropathy peripheral [None]
  - Pain in extremity [None]
  - Arthralgia [None]
  - Dysstasia [None]
  - Back pain [None]
  - Asthenia [None]
  - Abasia [None]
  - Retroperitoneal haematoma [None]

NARRATIVE: CASE EVENT DATE: 20161211
